FAERS Safety Report 4355297-3 (Version None)
Quarter: 2004Q2

REPORT INFORMATION
  Report Type: 
  Country: None (occurrence: None)
  Receive Date: 20040504
  Receipt Date: 20030731
  Transmission Date: 20050107
  Serious: No
  Sender: FDA-Public Use
  Company Number: 200303126

PATIENT
  Age: 16 Year
  Sex: Female

DRUGS (2)
  1. TYLENOL ANALGESIC (ACETAMINOPHEN) [Suspect]
     Indication: SUICIDE ATTEMPT
     Dosage: PO
     Route: 048
  2. DIMENHYDRINATE [Suspect]
     Indication: SUICIDE ATTEMPT

REACTIONS (3)
  - INTENTIONAL MISUSE [None]
  - SOMNOLENCE [None]
  - SUICIDE ATTEMPT [None]
